FAERS Safety Report 17038618 (Version 1)
Quarter: 2019Q4

REPORT INFORMATION
  Report Type: Spontaneous
  Country: US (occurrence: US)
  Receive Date: 20191016
  Receipt Date: 20191016
  Transmission Date: 20200122
  Serious: No
  Sender: FDA-Public Use
  Company Number: None

PATIENT
  Sex: Male

DRUGS (1)
  1. COSENTYX [Suspect]
     Active Substance: SECUKINUMAB
     Dosage: ?          OTHER DOSE:300MG EVERY 4 WEEK;?
     Route: 058
     Dates: start: 201812, end: 201908

REACTIONS (3)
  - Nasal dryness [None]
  - Lymphadenopathy [None]
  - Ocular hyperaemia [None]
